FAERS Safety Report 7041636-1 (Version None)
Quarter: 2010Q4

REPORT INFORMATION
  Report Type: 
  Country: None (occurrence: None)
  Receive Date: 20101013
  Receipt Date: 20100519
  Transmission Date: 20110411
  Serious: No
  Sender: FDA-Public Use
  Company Number: US-ASTRAZENECA-2010SE11150

PATIENT
  Age: 79 Year
  Sex: Female
  Weight: 59.4 kg

DRUGS (9)
  1. SYMBICORT [Suspect]
     Indication: COUGH
     Dosage: 160/4.5 MG
     Route: 055
  2. SYMBICORT [Suspect]
     Dosage: 160/4.5 MG
     Route: 055
     Dates: start: 20100101, end: 20100101
  3. PULMICORT FLEXHALER [Suspect]
     Dosage: 180 MCG
     Route: 055
  4. ATROVENT [Concomitant]
     Dosage: BID
  5. AVAPRO [Concomitant]
     Indication: BLOOD PRESSURE
  6. SYNTHROID [Concomitant]
  7. HYDROCHLOROTHIAZIDE [Concomitant]
     Indication: DIURETIC THERAPY
  8. LIPITOR [Concomitant]
     Indication: HYPERCHOLESTEROLAEMIA
     Dosage: HS
  9. ACTONEL [Concomitant]
     Indication: OSTEOPOROSIS
     Dosage: WEEK

REACTIONS (3)
  - COUGH [None]
  - DYSPHONIA [None]
  - DYSPNOEA [None]
